FAERS Safety Report 5235067-4 (Version None)
Quarter: 2007Q1

REPORT INFORMATION
  Report Type: 
  Country: None (occurrence: None)
  Receive Date: 20070207
  Receipt Date: 20070125
  Transmission Date: 20070707
  Serious: Yes (Hospitalization)
  Sender: FDA-Public Use
  Company Number: 2007BI000170

PATIENT
  Age: 62 Year
  Sex: Female
  Weight: 75.2971 kg

DRUGS (15)
  1. NATALIZUMAB [Suspect]
     Indication: MULTIPLE SCLEROSIS
     Dosage: 300 MG; QM; IV
     Route: 042
     Dates: start: 20061121
  2. CELEBREX [Concomitant]
  3. LEXAPRO [Concomitant]
  4. LEVOTHYROXINE SODIUM [Concomitant]
  5. CORTEF [Concomitant]
  6. ESTRADIOL [Concomitant]
  7. LIPITOR [Concomitant]
  8. PROVIGIL [Concomitant]
  9. GABITRIL [Concomitant]
  10. ARICEPT [Concomitant]
  11. ENABLEX [Concomitant]
  12. NEURONTIN [Concomitant]
  13. PROMETRIUM [Concomitant]
  14. TEMAZEPAM [Concomitant]
  15. CLONAZEPAM [Concomitant]

REACTIONS (1)
  - COLLAPSE OF LUNG [None]
